FAERS Safety Report 8470493-1 (Version None)
Quarter: 2012Q2

REPORT INFORMATION
  Report Type: 
  Country: None (occurrence: None)
  Receive Date: 20120627
  Receipt Date: 20110523
  Transmission Date: 20120825
  Serious: No
  Sender: FDA-Public Use
  Company Number: US-MYLANLABS-2011S1010821

PATIENT
  Age: 69 Year
  Sex: Male
  Weight: 111.13 kg

DRUGS (9)
  1. METFORMIN HCL [Concomitant]
     Dates: start: 20050101
  2. SIMVASTATIN [Concomitant]
     Dates: start: 20010101
  3. FINASTERIDE [Concomitant]
     Dates: start: 20030101
  4. ALBUTEROL [Concomitant]
     Route: 055
     Dates: start: 20030101
  5. PERFOROMIST [Suspect]
     Indication: CHRONIC OBSTRUCTIVE PULMONARY DISEASE
     Dates: start: 20110401
  6. HYDROCHLOROTHIAZIDE [Concomitant]
     Dates: start: 19960101
  7. GLIPIZIDE [Concomitant]
     Dates: start: 20050101
  8. FLUNISOLIDE [Concomitant]
     Dates: start: 20110301
  9. LISINOPRIL [Concomitant]
     Dates: start: 19980101

REACTIONS (2)
  - DYSPNOEA [None]
  - ASTHENIA [None]
